FAERS Safety Report 10332229 (Version 2)
Quarter: 2014Q1

REPORT INFORMATION
  Report Type: Spontaneous
  Country: US (occurrence: None)
  Receive Date: 20120817
  Receipt Date: 20130815
  Transmission Date: 20141002
  Serious: Yes (Other)
  Sender: FDA-Public Use
  Company Number: ADR-2012-00129

PATIENT
  Age: 15 Year
  Sex: Female

DRUGS (2)
  1. LIORESAL [Suspect]
     Indication: MUSCLE SPASTICITY
  2. LIORESAL [Suspect]
     Indication: CEREBRAL PALSY

REACTIONS (5)
  - Pruritus [None]
  - Muscle spasticity [None]
  - Irritability [None]
  - Exaggerated startle response [None]
  - Drug withdrawal syndrome [None]
